FAERS Safety Report 25819605 (Version 1)
Quarter: 2025Q3

REPORT INFORMATION
  Report Type: Spontaneous
  Country: US (occurrence: US)
  Receive Date: 20250918
  Receipt Date: 20250918
  Transmission Date: 20251021
  Serious: Yes (Other)
  Sender: PFIZER
  Company Number: US-PFIZER INC-PV202500111492

PATIENT
  Age: 64 Year
  Sex: Female

DRUGS (3)
  1. IBRANCE [Suspect]
     Active Substance: PALBOCICLIB
  2. IBRANCE [Suspect]
     Active Substance: PALBOCICLIB
  3. DULOXETINE [Suspect]
     Active Substance: DULOXETINE

REACTIONS (5)
  - Malignant neoplasm progression [Not Recovered/Not Resolved]
  - Aphasia [Not Recovered/Not Resolved]
  - Dizziness [Not Recovered/Not Resolved]
  - Muscle twitching [Not Recovered/Not Resolved]
  - Neutrophil count decreased [Unknown]

NARRATIVE: CASE EVENT DATE: 20250101
